FAERS Safety Report 5831606-0 (Version None)
Quarter: 2008Q3

REPORT INFORMATION
  Report Type: 
  Country: None (occurrence: None)
  Receive Date: 20080801
  Receipt Date: 20080722
  Transmission Date: 20090109
  Serious: Yes (Hospitalization)
  Sender: FDA-Public Use
  Company Number: JP-ABBOTT-08P-087-0465317-00

PATIENT
  Age: 39 Year
  Sex: Male

DRUGS (4)
  1. NORVIR [Suspect]
     Indication: HIV INFECTION
     Dosage: DAILY
     Route: 048
     Dates: start: 20070401
  2. ATAZANAVIR SULFATE [Suspect]
     Indication: HIV INFECTION
     Dosage: 300 MG, DAILY
     Route: 048
     Dates: start: 20070401
  3. EMTRICITABINE W/TENOFOVIR [Suspect]
     Indication: HIV INFECTION
     Dosage: 1 TAB, DAILY
     Route: 048
     Dates: start: 20070401
  4. PENTAMIDINE ISETHIONATE [Concomitant]
     Indication: ANTIFUNGAL PROPHYLAXIS
     Dosage: 100 MG, DAILY, ONCE PER MONTH
     Route: 055
     Dates: start: 20070401

REACTIONS (1)
  - ANGINA UNSTABLE [None]
